FAERS Safety Report 11371659 (Version 1)
Quarter: 2015Q3

REPORT INFORMATION
  Report Type: Spontaneous
  Country: US (occurrence: US)
  Receive Date: 20150812
  Receipt Date: 20150812
  Transmission Date: 20151125
  Serious: No
  Sender: FDA-Public Use
  Company Number: US-BAYER-2015-398600

PATIENT
  Age: 69 Year
  Sex: Female
  Weight: 113.38 kg

DRUGS (14)
  1. RANITIDINE [Concomitant]
     Active Substance: RANITIDINE\RANITIDINE HYDROCHLORIDE
     Dosage: UNK
  2. MELOXICAM. [Concomitant]
     Active Substance: MELOXICAM
  3. HYDROCORTISONE. [Concomitant]
     Active Substance: HYDROCORTISONE
  4. GABAPENTIN. [Concomitant]
     Active Substance: GABAPENTIN
  5. GAS-X [Concomitant]
     Active Substance: DIMETHICONE
  6. XANAX [Concomitant]
     Active Substance: ALPRAZOLAM
  7. BUSPIRONE [Concomitant]
     Active Substance: BUSPIRONE HYDROCHLORIDE
  8. SYSTANE [MACROGOL,PROPYLENE GLYCOL] [Concomitant]
  9. HYDROCODONE/ACETAMINOPHEN [Concomitant]
     Active Substance: ACETAMINOPHEN\HYDROCODONE
  10. CENTRUM [VIT C,VIT H,B5,B12,D2,FE+,B3,B6,RETINOL,B2,B1 HCL,VIT E] [Concomitant]
  11. MYLANTA [CALCIUM CARBONATE] [Concomitant]
  12. OXYTROL FOR WOMEN [Suspect]
     Active Substance: OXYBUTYNIN
     Indication: HYPERTONIC BLADDER
     Dosage: 1 PATCH, EVERY 4 DAYS
     Route: 061
     Dates: start: 201506
  13. VENLAFAXINE HYDROCHLORIDE. [Concomitant]
     Active Substance: VENLAFAXINE HYDROCHLORIDE
     Dosage: UNK
  14. FUROSEMIDE. [Concomitant]
     Active Substance: FUROSEMIDE
     Dosage: UNK

REACTIONS (1)
  - Drug ineffective [Unknown]

NARRATIVE: CASE EVENT DATE: 201506
